FAERS Safety Report 6998127-3 (Version None)
Quarter: 2010Q3

REPORT INFORMATION
  Report Type: 
  Country: None (occurrence: None)
  Receive Date: 20100920
  Receipt Date: 20070402
  Transmission Date: 20110219
  Serious: Yes (Hospitalization, Other)
  Sender: FDA-Public Use
  Company Number: US-ASTRAZENECA-2006UW01660

PATIENT
  Age: 35 Year
  Sex: Female
  Weight: 74.8 kg

DRUGS (15)
  1. SEROQUEL [Suspect]
     Indication: SCHIZOPHRENIA
     Dosage: 100 - 300 MG
     Route: 048
     Dates: start: 19990802, end: 20060309
  2. SEROQUEL [Suspect]
     Dosage: 25-1000MG
     Route: 048
     Dates: start: 19990802
  3. RISPERDAL [Suspect]
     Dates: start: 20020424
  4. ZYPREXA [Suspect]
     Dates: start: 19960101, end: 19970101
  5. ZYPREXA [Suspect]
     Dates: start: 19990707
  6. GEODON [Concomitant]
     Dates: start: 19900101
  7. HALDOL [Concomitant]
     Dates: start: 19920101
  8. NAVANE [Concomitant]
  9. THORAZINE [Concomitant]
     Dates: start: 19970101
  10. SYMBYAX [Concomitant]
     Dates: start: 19960101, end: 19970101
  11. OTHER PSYCHIATRIC MEDICATION [Concomitant]
  12. DILANTIN [Concomitant]
     Indication: CONVULSION
     Dosage: 200-500MG
     Dates: start: 20000317
  13. TRILEPTAL [Concomitant]
     Indication: MOOD SWINGS
     Dates: start: 20020424
  14. REMERON [Concomitant]
     Indication: SLEEP DISORDER
     Dates: start: 20020424
  15. CELEXA [Concomitant]
     Dates: start: 20020424

REACTIONS (3)
  - PANCREATITIS ACUTE [None]
  - PANCREATITIS CHRONIC [None]
  - TARDIVE DYSKINESIA [None]
